FAERS Safety Report 7861646-1 (Version None)
Quarter: 2011Q4

REPORT INFORMATION
  Report Type: 
  Country: None (occurrence: None)
  Receive Date: 20111027
  Receipt Date: 20111021
  Transmission Date: 20120403
  Serious: Yes (Death, Other)
  Sender: FDA-Public Use
  Company Number: PHHY2011US93554

PATIENT
  Age: 69 Year
  Sex: Male

DRUGS (6)
  1. LISINOPRIL [Concomitant]
  2. OXALIPLATIN [Suspect]
     Dosage: 85 MG/M2, EVERY 14 DAYS
     Route: 042
  3. LEUCOVORIN CALCIUM [Concomitant]
     Indication: ADENOCARCINOMA
     Dosage: 400 MG/M2, EVERY 14 DAYS
     Route: 040
  4. FLUOROURACIL [Concomitant]
     Dosage: 2400 MG/M2, OVER 46 HOURS EVERY 14 DAYS
  5. OXALIPLATIN [Suspect]
     Indication: ADENOCARCINOMA
     Dosage: 85 MG/M2, EVERY 14 DAYS
     Route: 042
  6. FLUOROURACIL [Concomitant]
     Indication: ADENOCARCINOMA
     Dosage: 400 MG/M2, ON DAY 1 EVERY 14 DAYS
     Route: 040

REACTIONS (10)
  - RALES [None]
  - COUGH [None]
  - PYREXIA [None]
  - LUNG INFILTRATION [None]
  - TOXICITY TO VARIOUS AGENTS [None]
  - DIFFUSE ALVEOLAR DAMAGE [None]
  - PNEUMONITIS [None]
  - PNEUMOTHORAX [None]
  - DYSPNOEA [None]
  - FATIGUE [None]
